FAERS Safety Report 23133839 (Version 1)
Quarter: 2023Q4

REPORT INFORMATION
  Report Type: Spontaneous
  Country: US (occurrence: US)
  Receive Date: 20231101
  Receipt Date: 20231101
  Transmission Date: 20240110
  Serious: No
  Sender: FDA-Public Use
  Company Number: US-INCYTE CORPORATION-2023IN011084

PATIENT

DRUGS (1)
  1. JAKAFI [Suspect]
     Active Substance: RUXOLITINIB
     Dosage: 2.5 MILLIGRAM, BID (ONE-HALF TABLET VIA G-TUBE TWICE DAILY)
     Route: 048

REACTIONS (2)
  - Wrong technique in product usage process [Unknown]
  - Off label use [Unknown]
